FAERS Safety Report 18354010 (Version 2)
Quarter: 2020Q4

REPORT INFORMATION
  Report Type: Spontaneous
  Country: JP (occurrence: JP)
  Receive Date: 20201007
  Receipt Date: 20201208
  Transmission Date: 20210114
  Serious: Yes (Other)
  Sender: FDA-Public Use
  Company Number: NVSJ2020JP009755

PATIENT
  Age: 43 Year
  Sex: Female

DRUGS (1)
  1. FINGOLIMOD. [Suspect]
     Active Substance: FINGOLIMOD
     Indication: MULTIPLE SCLEROSIS
     Dosage: UNK
     Route: 065
     Dates: end: 2019

REACTIONS (8)
  - Muscular weakness [Unknown]
  - Gait spastic [Unknown]
  - Sensory disturbance [Unknown]
  - Cerebral atrophy [Unknown]
  - Judgement impaired [Unknown]
  - Multiple sclerosis [Unknown]
  - Hyperreflexia [Unknown]
  - Fatigue [Unknown]
